FAERS Safety Report 12755442 (Version 2)
Quarter: 2019Q4

REPORT INFORMATION
  Report Type: Spontaneous
  Country: NO (occurrence: NO)
  Receive Date: 20160916
  Receipt Date: 20191021
  Transmission Date: 20200122
  Serious: Yes (Other)
  Sender: FDA-Public Use
  Company Number: NO-TEVA-690743ISR

PATIENT
  Age: 35 Year
  Sex: Female

DRUGS (1)
  1. VALSARTAN ACTAVIS [Suspect]
     Active Substance: VALSARTAN
     Dosage: AT LEAST A YEAR

REACTIONS (2)
  - Abortion spontaneous [Unknown]
  - Maternal exposure during pregnancy [Unknown]

NARRATIVE: CASE EVENT DATE: 2016
